FAERS Safety Report 17311581 (Version 1)
Quarter: 2020Q1

REPORT INFORMATION
  Report Type: Spontaneous
  Country: US (occurrence: US)
  Receive Date: 20200123
  Receipt Date: 20200123
  Transmission Date: 20200409
  Serious: Yes (Other)
  Sender: FDA-Public Use
  Company Number: US-ROCHE-2255796

PATIENT
  Age: 20 Month
  Sex: Male

DRUGS (1)
  1. RITUXIMAB. [Suspect]
     Active Substance: RITUXIMAB
     Indication: CYTOMEGALOVIRUS INFECTION
     Route: 065

REACTIONS (2)
  - Fungaemia [Unknown]
  - Bacteraemia [Unknown]
